FAERS Safety Report 9096692 (Version 1)
Quarter: 2013Q1

REPORT INFORMATION
  Report Type: Spontaneous
  Country: CA (occurrence: CA)
  Receive Date: 20130211
  Receipt Date: 20130211
  Transmission Date: 20140127
  Serious: Yes (Other)
  Sender: FDA-Public Use
  Company Number: CA-PFIZER INC-2013048703

PATIENT
  Sex: Female

DRUGS (1)
  1. VIROPTIC [Suspect]
     Dosage: UNK
     Route: 047

REACTIONS (3)
  - Loss of consciousness [Unknown]
  - Incorrect dose administered [Unknown]
  - Fall [Unknown]
